FAERS Safety Report 4667900-9 (Version None)
Quarter: 2005Q2

REPORT INFORMATION
  Report Type: 
  Country: None (occurrence: None)
  Receive Date: 20050520
  Receipt Date: 20050510
  Transmission Date: 20051028
  Serious: Yes (Other)
  Sender: FDA-Public Use
  Company Number: BR-ROCHE-404504

PATIENT
  Age: 14 Year
  Sex: Female

DRUGS (2)
  1. ROACUTAN [Suspect]
     Indication: ACNE
     Route: 048
     Dates: start: 19990615, end: 19990615
  2. ROACUTAN [Suspect]
     Route: 048
     Dates: start: 20040915, end: 20050415

REACTIONS (1)
  - NEPHROLITHIASIS [None]
